FAERS Safety Report 6729697-8 (Version None)
Quarter: 2010Q2

REPORT INFORMATION
  Report Type: 
  Country: None (occurrence: None)
  Receive Date: 20100512
  Receipt Date: 20100428
  Transmission Date: 20101027
  Serious: Yes (Disabling)
  Sender: FDA-Public Use
  Company Number: 1-22440277

PATIENT
  Sex: Female

DRUGS (1)
  1. METOCLOPRAMIDE [Suspect]
     Dosage: 30-40 MG PER DAY, ORAL
     Route: 048
     Dates: start: 20010701, end: 20080701

REACTIONS (7)
  - DEFORMITY [None]
  - DYSKINESIA [None]
  - EMOTIONAL DISTRESS [None]
  - EXTRAPYRAMIDAL DISORDER [None]
  - INJURY [None]
  - NERVOUS SYSTEM DISORDER [None]
  - PAIN [None]
